FAERS Safety Report 7361106-0 (Version None)
Quarter: 2011Q1

REPORT INFORMATION
  Report Type: 
  Country: None (occurrence: None)
  Receive Date: 20110318
  Receipt Date: 20110310
  Transmission Date: 20110831
  Serious: Yes (Death, Other)
  Sender: FDA-Public Use
  Company Number: JP-ROCHE-765068

PATIENT
  Sex: Male

DRUGS (2)
  1. COPEGUS [Suspect]
     Dosage: DOSAGE: UNCERTAIN
     Route: 048
  2. PEGASYS [Suspect]
     Dosage: FORM: INJECTION DOSAGE: UNCERTAIN
     Route: 058

REACTIONS (2)
  - RHABDOMYOLYSIS [None]
  - RENAL FAILURE ACUTE [None]
